FAERS Safety Report 5253646-5 (Version None)
Quarter: 2007Q1

REPORT INFORMATION
  Report Type: 
  Country: None (occurrence: None)
  Receive Date: 20061201
  Receipt Date: 20060727
  Transmission Date: 20070707
  Serious: No
  Sender: FDA-Public Use
  Company Number: 2006PV018372

PATIENT
  Age: 53 Year
  Sex: Female
  Weight: 86.637 kg

DRUGS (4)
  1. BYETTA [Suspect]
     Indication: DIABETES MELLITUS NON-INSULIN-DEPENDENT
     Dosage: 10 MCG;BID;SC, 5 MCG;BID;SC;SC
     Route: 058
     Dates: start: 20051111, end: 20051210
  2. BYETTA [Suspect]
     Indication: DIABETES MELLITUS NON-INSULIN-DEPENDENT
     Dosage: 10 MCG;BID;SC, 5 MCG;BID;SC;SC
     Route: 058
     Dates: start: 20060131, end: 20060101
  3. BYETTA [Suspect]
     Indication: DIABETES MELLITUS NON-INSULIN-DEPENDENT
     Dosage: 10 MCG;BID;SC, 5 MCG;BID;SC;SC
     Route: 058
     Dates: start: 20051211
  4. METFORMIN HCL [Concomitant]

REACTIONS (3)
  - ABNORMAL DREAMS [None]
  - NIGHT SWEATS [None]
  - WEIGHT DECREASED [None]
